FAERS Safety Report 23586059 (Version 1)
Quarter: 2024Q1

REPORT INFORMATION
  Report Type: Spontaneous
  Country: US (occurrence: None)
  Receive Date: 20240301
  Receipt Date: 20240301
  Transmission Date: 20240409
  Serious: Yes (Hospitalization)
  Sender: FDA-Public Use
  Company Number: None

PATIENT
  Age: 5 Year
  Sex: Female
  Weight: 9.34 kg

DRUGS (5)
  1. CALASPARGASE PEGOL-MKNL [Suspect]
     Active Substance: CALASPARGASE PEGOL-MKNL
     Dates: end: 20240129
  2. CYTARABINE [Suspect]
     Active Substance: CYTARABINE
     Dates: end: 20240126
  3. DEXAMETHASONE [Suspect]
     Active Substance: DEXAMETHASONE
     Dates: end: 20240224
  4. METHOTREXATE [Suspect]
     Active Substance: METHOTREXATE
  5. VINCRISTINE [Suspect]
     Active Substance: VINCRISTINE
     Dates: end: 20240216

REACTIONS (11)
  - Sepsis [None]
  - Septic shock [None]
  - Appendicitis perforated [None]
  - Abdominal abscess [None]
  - Pseudomonas test positive [None]
  - Pneumonia klebsiella [None]
  - Mental status changes [None]
  - Encephalopathy [None]
  - Bacteroides infection [None]
  - Oxygen saturation decreased [None]
  - Vomiting [None]

NARRATIVE: CASE EVENT DATE: 20240222
